FAERS Safety Report 10714554 (Version 1)
Quarter: 2015Q1

REPORT INFORMATION
  Report Type: Spontaneous
  Country: PL (occurrence: PL)
  Receive Date: 20150115
  Receipt Date: 20150115
  Transmission Date: 20150721
  Serious: Yes (Life-Threatening)
  Sender: FDA-Public Use
  Company Number: PL-TEVA-534439ISR

PATIENT
  Age: 70 Year
  Sex: Female
  Weight: 77 kg

DRUGS (2)
  1. NAVIREL [Suspect]
     Active Substance: VINORELBINE TARTRATE
     Dosage: 52.82 MILLIGRAM DAILY;
     Route: 042
     Dates: start: 20141230, end: 20150106
  2. CISPLATIN TEVA [Suspect]
     Active Substance: CISPLATIN
     Indication: MALIGNANT RESPIRATORY TRACT NEOPLASM
     Dosage: 52.82 MILLIGRAM DAILY;
     Route: 042
     Dates: start: 20141230, end: 20150101

REACTIONS (4)
  - Dyspnoea [Recovering/Resolving]
  - General physical health deterioration [Recovering/Resolving]
  - Pyrexia [Recovering/Resolving]
  - Cough [Recovering/Resolving]

NARRATIVE: CASE EVENT DATE: 20150112
